FAERS Safety Report 25549711 (Version 3)
Quarter: 2025Q4

REPORT INFORMATION
  Report Type: Spontaneous
  Country: US (occurrence: US)
  Receive Date: 20250714
  Receipt Date: 20251016
  Transmission Date: 20260118
  Serious: Yes (Hospitalization, Other)
  Sender: CALLIDITAS THERAPEUTICS AB
  Company Number: US-Calliditas-2025CAL01211

PATIENT
  Age: 48 Year
  Sex: Male

DRUGS (16)
  1. TARPEYO [Suspect]
     Active Substance: BUDESONIDE
     Indication: IgA nephropathy
     Route: 048
     Dates: start: 20240308
  2. ACETAMINOPHEN [Concomitant]
     Active Substance: ACETAMINOPHEN
  3. ALPRAZOLAM [Concomitant]
     Active Substance: ALPRAZOLAM
  4. CELLCEPT [Concomitant]
     Active Substance: MYCOPHENOLATE MOFETIL
  5. CYCLOSPORINE [Concomitant]
     Active Substance: CYCLOSPORINE
  6. LOSARTAN [Concomitant]
     Active Substance: LOSARTAN
  7. METHADONE [Concomitant]
     Active Substance: METHADONE HYDROCHLORIDE
  8. ONDANSETRON [Concomitant]
     Active Substance: ONDANSETRON
  9. PERCOCET [Concomitant]
     Active Substance: ACETAMINOPHEN\OXYCODONE HYDROCHLORIDE
  10. PRILOSEC [Concomitant]
     Active Substance: OMEPRAZOLE MAGNESIUM
  11. SENSIPAR [Concomitant]
     Active Substance: CINACALCET HYDROCHLORIDE
  12. SODIUM BICARBONATE [Concomitant]
     Active Substance: SODIUM BICARBONATE
  13. TADALAFIL [Concomitant]
     Active Substance: TADALAFIL
  14. FARXIGA [Concomitant]
     Active Substance: DAPAGLIFLOZIN PROPANEDIOL
  15. ELIQUIS [Concomitant]
     Active Substance: APIXABAN
  16. PLAVIX [Concomitant]
     Active Substance: CLOPIDOGREL BISULFATE

REACTIONS (10)
  - Surgery [Unknown]
  - Arterial injury [Unknown]
  - Abdominal distension [Not Recovered/Not Resolved]
  - Cushingoid [Not Recovered/Not Resolved]
  - Renal pain [Not Recovered/Not Resolved]
  - Hair growth abnormal [Recovering/Resolving]
  - Oedema [Recovering/Resolving]
  - Acne [Recovering/Resolving]
  - Asplenia [Unknown]
  - Blood pressure increased [Unknown]
